FAERS Safety Report 19683570 (Version 1)
Quarter: 2021Q3

REPORT INFORMATION
  Report Type: Spontaneous
  Country: US (occurrence: US)
  Receive Date: 20210810
  Receipt Date: 20210810
  Transmission Date: 20211014
  Serious: No
  Sender: FDA-Public Use
  Company Number: US-B.I. PHARMACEUTICALS,INC./RIDGEFIELD-2021-BI-120684

PATIENT
  Sex: Male

DRUGS (3)
  1. METHIMAZOLE. [Concomitant]
     Active Substance: METHIMAZOLE
     Indication: BASEDOW^S DISEASE
     Route: 065
  2. MELOXICAM. [Suspect]
     Active Substance: MELOXICAM
     Indication: PRODUCT USED FOR UNKNOWN INDICATION
     Route: 065
  3. EUCRISA [Concomitant]
     Active Substance: CRISABOROLE
     Indication: DERMATITIS ATOPIC
     Dosage: DOSAGE FORM: 2% CREAM?APPLY ONCE TO TWICE DAILY TO TRUNK AND ARMS AS NEEDED FOR ATOPIC DERMATITIS FL

REACTIONS (3)
  - Basedow^s disease [Unknown]
  - Intervertebral disc protrusion [Unknown]
  - Dermatitis atopic [Unknown]
